FAERS Safety Report 5627063-X (Version None)
Quarter: 2008Q1

REPORT INFORMATION
  Report Type: 
  Country: None (occurrence: None)
  Receive Date: 20080116
  Receipt Date: 20070129
  Transmission Date: 20080703
  Serious: Yes (Other)
  Sender: FDA-Public Use
  Company Number: BDI-009078

PATIENT
  Age: 56 Year
  Sex: Male

DRUGS (2)
  1. PROHANCE [Suspect]
     Indication: CHOKING SENSATION
     Dosage: 20 ML ONCE IV
     Route: 042
     Dates: start: 20070129, end: 20070129
  2. PROHANCE [Suspect]
     Indication: NUCLEAR MAGNETIC RESONANCE IMAGING
     Dosage: 20 ML ONCE IV
     Route: 042
     Dates: start: 20070129, end: 20070129

REACTIONS (3)
  - DYSPNOEA [None]
  - LETHARGY [None]
  - PALLOR [None]
